FAERS Safety Report 5449448-7 (Version None)
Quarter: 2007Q3

REPORT INFORMATION
  Report Type: 
  Country: None (occurrence: None)
  Receive Date: 20070907
  Receipt Date: 20070830
  Transmission Date: 20080115
  Serious: Yes (Life-Threatening, Hospitalization)
  Sender: FDA-Public Use
  Company Number: 028-21880-07080835

PATIENT
  Age: 77 Year
  Sex: Female

DRUGS (11)
  1. REVLIMID [Suspect]
     Indication: 5Q-SYNDROME
     Dosage: 5 MG, 1 IN 1 D, ORAL; 2.5 MG, 1 IN 2 D, ORAL
     Route: 048
     Dates: start: 20070630, end: 20070805
  2. REVLIMID [Suspect]
     Indication: 5Q-SYNDROME
     Dosage: 5 MG, 1 IN 1 D, ORAL; 2.5 MG, 1 IN 2 D, ORAL
     Route: 048
     Dates: start: 20070806
  3. FENOFIBRATE [Concomitant]
  4. INDAPAMIDE [Concomitant]
  5. GLYBURIDE [Concomitant]
  6. ASPIRIN [Concomitant]
  7. MECLIZINE [Concomitant]
  8. DILTIAZEM [Concomitant]
  9. ALLOPURINOL [Concomitant]
  10. VASOTEC [Concomitant]
  11. LOZIDE (INDAPAMIDE HEMIHYDRATE) [Concomitant]

REACTIONS (5)
  - ABDOMINAL PAIN [None]
  - FEBRILE NEUTROPENIA [None]
  - HAEMOGLOBIN INCREASED [None]
  - PLATELET COUNT DECREASED [None]
  - WHITE BLOOD CELL COUNT DECREASED [None]
